FAERS Safety Report 5593079-5 (Version None)
Quarter: 2008Q1

REPORT INFORMATION
  Report Type: 
  Country: None (occurrence: None)
  Receive Date: 20080116
  Receipt Date: 20080108
  Transmission Date: 20080703
  Serious: Yes (Hospitalization)
  Sender: FDA-Public Use
  Company Number: US-BRACCO-000031

PATIENT
  Sex: Female

DRUGS (3)
  1. ISOVUE-128 [Suspect]
     Indication: DIAGNOSTIC PROCEDURE
     Route: 042
     Dates: start: 20080103, end: 20080103
  2. LOVENOX [Concomitant]
     Route: 065
  3. COUMADIN [Concomitant]
     Route: 065

REACTIONS (4)
  - BLISTER [None]
  - BURNING SENSATION [None]
  - EXTRAVASATION [None]
  - SKIN NECROSIS [None]
